FAERS Safety Report 6657578-7 (Version None)
Quarter: 2010Q1

REPORT INFORMATION
  Report Type: 
  Country: None (occurrence: None)
  Receive Date: 20100330
  Receipt Date: 20100317
  Transmission Date: 20100710
  Serious: No
  Sender: FDA-Public Use
  Company Number: US-B.I. PHARMACEUTICALS,INC./RIDGEFIELD-2010-BP-03134BP

PATIENT
  Age: 76 Year
  Sex: Female

DRUGS (6)
  1. CATAPRES [Suspect]
     Indication: HYPERTENSION
     Dosage: 0.3 MG
     Route: 048
     Dates: start: 20100305
  2. DIOVAN [Concomitant]
     Indication: HYPERTENSION
     Route: 048
     Dates: start: 20000101
  3. DOXAZOSIN [Concomitant]
     Indication: HYPERTENSION
     Route: 048
     Dates: start: 20070101
  4. K-DUR [Concomitant]
     Indication: BLOOD POTASSIUM
     Dosage: 20 MEQ
     Route: 048
  5. ASPIRIN [Concomitant]
     Indication: ARTERIAL DISORDER
     Dosage: 325 MG
     Route: 048
  6. LORAZEPAM [Concomitant]
     Indication: ANXIETY
     Dosage: 1.5 MG
     Route: 048

REACTIONS (1)
  - DIARRHOEA [None]
